FAERS Safety Report 21267397 (Version 3)
Quarter: 2022Q4

REPORT INFORMATION
  Report Type: Spontaneous
  Country: GB (occurrence: GB)
  Receive Date: 20220829
  Receipt Date: 20221109
  Transmission Date: 20230113
  Serious: Yes (Death, Hospitalization)
  Sender: FDA-Public Use
  Company Number: GB-JNJFOC-20220859915

PATIENT
  Age: 61 Year
  Sex: Male

DRUGS (8)
  1. TREMFYA [Suspect]
     Active Substance: GUSELKUMAB
     Indication: Psoriasis
     Route: 065
     Dates: start: 20190626, end: 202003
  2. TREMFYA [Suspect]
     Active Substance: GUSELKUMAB
     Route: 065
     Dates: start: 202101
  3. TREMFYA [Suspect]
     Active Substance: GUSELKUMAB
  4. TRELEGY ELLIPTA [Concomitant]
     Active Substance: FLUTICASONE FUROATE\UMECLIDINIUM BROMIDE\VILANTEROL TRIFENATATE
  5. ALBUTEROL [Concomitant]
     Active Substance: ALBUTEROL
  6. NICOTINE [Concomitant]
     Active Substance: NICOTINE
     Route: 062
  7. APIXABAN [Concomitant]
     Active Substance: APIXABAN
  8. BISOPROLOL [Concomitant]
     Active Substance: BISOPROLOL

REACTIONS (2)
  - Cardiac arrest [Fatal]
  - Brain injury [Fatal]

NARRATIVE: CASE EVENT DATE: 20220302
